FAERS Safety Report 6589642-5 (Version None)
Quarter: 2010Q1

REPORT INFORMATION
  Report Type: 
  Country: None (occurrence: None)
  Receive Date: 20100212
  Receipt Date: 20100128
  Transmission Date: 20100710
  Serious: Yes (Hospitalization)
  Sender: FDA-Public Use
  Company Number: 2010SP000280

PATIENT
  Sex: Female
  Weight: 63.5 kg

DRUGS (12)
  1. XOPENEX HFA [Suspect]
     Indication: EMPHYSEMA
     Dosage: ; PRN; INHALATION
     Route: 055
     Dates: end: 20100121
  2. XOPENEX HFA [Suspect]
     Indication: EMPHYSEMA
     Dosage: ; PRN; INHALATION
     Route: 055
     Dates: start: 20100122, end: 20100123
  3. XOPENEX HFA [Suspect]
     Indication: EMPHYSEMA
     Dosage: ; PRN; INHALATION
     Route: 055
     Dates: start: 20070101
  4. XOPENEX HFA [Suspect]
     Indication: EMPHYSEMA
     Dosage: ; PRN; INHALATION
     Route: 055
     Dates: start: 20100123
  5. XOPENEX HFA [Suspect]
  6. ASPIRIN [Concomitant]
  7. DIOVAN /01319601/ [Concomitant]
  8. ISOSORBIDE [Concomitant]
  9. METFORMIN HYDROCHLORIDE [Concomitant]
  10. SITAGLIPTIN [Concomitant]
  11. PREVACID [Concomitant]
  12. ZOCOR [Concomitant]

REACTIONS (3)
  - DRUG INEFFECTIVE [None]
  - EMPHYSEMA [None]
  - PERICARDIAL EFFUSION [None]
